FAERS Safety Report 19805012 (Version 16)
Quarter: 2022Q4

REPORT INFORMATION
  Report Type: Report from Study
  Country: JP (occurrence: None)
  Receive Date: 20210908
  Receipt Date: 20221104
  Transmission Date: 20230112
  Serious: Yes (Hospitalization)
  Sender: FDA-Public Use
  Company Number: JP-EISAI MEDICAL RESEARCH-EC-2021-099003

PATIENT
  Age: 58 Year
  Sex: Female
  Weight: 81.9 kg

DRUGS (25)
  1. LENVATINIB [Suspect]
     Active Substance: LENVATINIB
     Indication: Endometrial cancer
     Dosage: STARTING DOSE AT 20 MILLIGRAM (FLUCTUATED)
     Route: 048
     Dates: start: 20180926, end: 20210805
  2. LENVATINIB [Suspect]
     Active Substance: LENVATINIB
     Route: 048
     Dates: start: 20210806, end: 20210806
  3. PEMBROLIZUMAB [Suspect]
     Active Substance: PEMBROLIZUMAB
     Indication: Endometrial cancer
     Route: 042
     Dates: start: 20180926, end: 20200824
  4. PEMBROLIZUMAB [Suspect]
     Active Substance: PEMBROLIZUMAB
     Route: 042
     Dates: start: 20200914, end: 20200914
  5. MAGNESIUM OXIDE [Concomitant]
     Active Substance: MAGNESIUM OXIDE
     Dates: start: 20150825
  6. REBAMIPIDE [Concomitant]
     Active Substance: REBAMIPIDE
     Dates: start: 20170821, end: 20210822
  7. METOCLOPRAMIDE [Concomitant]
     Active Substance: METOCLOPRAMIDE
     Dates: start: 20180929
  8. NADIFLOXACIN [Concomitant]
     Active Substance: NADIFLOXACIN
     Route: 061
     Dates: start: 20181120
  9. NEXIUM [Concomitant]
     Active Substance: ESOMEPRAZOLE MAGNESIUM
     Dates: start: 20181203
  10. SODIUM GUALENATE [Concomitant]
     Active Substance: SODIUM GUALENATE
     Route: 061
     Dates: start: 20181210, end: 20210817
  11. XYLOCAINE [Concomitant]
     Active Substance: LIDOCAINE HYDROCHLORIDE
     Route: 061
     Dates: start: 20190104, end: 20210817
  12. ACETAMINOPHEN [Concomitant]
     Active Substance: ACETAMINOPHEN
     Dates: start: 20190128, end: 20210901
  13. UREA [Concomitant]
     Active Substance: UREA
     Dates: start: 20190311, end: 20210817
  14. LYRICA [Concomitant]
     Active Substance: PREGABALIN
     Dates: start: 20190603
  15. SHAKUYAKUKANZOTO [Concomitant]
     Active Substance: HERBALS
     Dates: start: 20190917
  16. CARBOCYSTEINE [Concomitant]
     Active Substance: CARBOCYSTEINE
     Dates: start: 20200420
  17. ATORVASTATIN CALCIUM [Concomitant]
     Active Substance: ATORVASTATIN CALCIUM
     Dates: start: 20200714
  18. BILASTINE [Concomitant]
     Active Substance: BILASTINE
     Dates: start: 20201005
  19. CLOBETASOL [Concomitant]
     Active Substance: CLOBETASOL
     Dates: start: 20201005, end: 20211213
  20. PETROLATUM [Concomitant]
     Active Substance: PETROLATUM
     Dates: start: 20201005, end: 20211213
  21. LOXOPROFEN SODIUM [Concomitant]
     Active Substance: LOXOPROFEN SODIUM
     Dates: start: 20201006
  22. SILVER SULFADIAZINE [Concomitant]
     Active Substance: SILVER SULFADIAZINE
     Dates: start: 20201019, end: 20211213
  23. DEXAMETHASONE [Concomitant]
     Active Substance: DEXAMETHASONE
     Dates: start: 20201026
  24. LEVOTHYROXINE SODIUM [Concomitant]
     Active Substance: LEVOTHYROXINE SODIUM
     Dates: start: 20210302
  25. SARPOGRELATE HYDROCHLORIDE [Concomitant]
     Active Substance: SARPOGRELATE HYDROCHLORIDE
     Dates: start: 20210510, end: 20210806

REACTIONS (1)
  - Pyoderma gangrenosum [Recovered/Resolved]

NARRATIVE: CASE EVENT DATE: 20210806
